FAERS Safety Report 7732336-0 (Version None)
Quarter: 2011Q3

REPORT INFORMATION
  Report Type: 
  Country: None (occurrence: None)
  Receive Date: 20110906
  Receipt Date: 20110826
  Transmission Date: 20111222
  Serious: Yes (Other)
  Sender: FDA-Public Use
  Company Number: JP-B.I. PHARMACEUTICALS,INC./RIDGEFIELD-2011-BP-20443NB

PATIENT
  Age: 7 Decade
  Sex: Male

DRUGS (3)
  1. NORVASC [Concomitant]
     Route: 065
  2. PRADAXA [Suspect]
     Indication: ATRIAL FIBRILLATION
     Dosage: 220 MG
     Route: 048
  3. DIGOXIN [Concomitant]
     Route: 065

REACTIONS (2)
  - LARGE INTESTINE CARCINOMA [None]
  - HAEMATOCHEZIA [None]
